FAERS Safety Report 7486292-3 (Version None)
Quarter: 2011Q2

REPORT INFORMATION
  Report Type: 
  Country: None (occurrence: None)
  Receive Date: 20110517
  Receipt Date: 20110418
  Transmission Date: 20111010
  Serious: No
  Sender: FDA-Public Use
  Company Number: A0924098A

PATIENT
  Sex: Male

DRUGS (1)
  1. VOTRIENT [Suspect]
     Dosage: 800MG PER DAY
     Route: 065

REACTIONS (3)
  - MUCOSAL INFLAMMATION [None]
  - GASTRIC DISORDER [None]
  - HAIR COLOUR CHANGES [None]
